FAERS Safety Report 23077989 (Version 1)
Quarter: 2023Q4

REPORT INFORMATION
  Report Type: Spontaneous
  Country: US (occurrence: US)
  Receive Date: 20231018
  Receipt Date: 20231018
  Transmission Date: 20240110
  Serious: No
  Sender: FDA-Public Use
  Company Number: US-drreddys-SPO/USA/23/0178087

PATIENT
  Age: 18 Year
  Sex: Female

DRUGS (1)
  1. ZENATANE [Suspect]
     Active Substance: ISOTRETINOIN
     Indication: Product used for unknown indication
     Dosage: RMA ISSUE DATE: 13 APRIL 2023 05:47:52 PM, 11 MAY 2023 10:50:42 AM, 12 JUNE 2023 11:15:17 AM, 07 JUL

REACTIONS (2)
  - Paronychia [Unknown]
  - Excessive granulation tissue [Unknown]
